FAERS Safety Report 18862750 (Version 1)
Quarter: 2021Q1

REPORT INFORMATION
  Report Type: Spontaneous
  Country: FR (occurrence: FR)
  Receive Date: 20210208
  Receipt Date: 20210208
  Transmission Date: 20210420
  Serious: Yes (Other)
  Sender: FDA-Public Use
  Company Number: FR-AMGEN-FRASP2021016640

PATIENT
  Age: 58 Year
  Sex: Female

DRUGS (5)
  1. PARACETAMOL [Concomitant]
     Active Substance: ACETAMINOPHEN
  2. PROLIA [Suspect]
     Active Substance: DENOSUMAB
     Indication: BONE DISORDER
     Dosage: UNK
     Route: 065
  3. DALACINE [CLINDAMYCIN PHOSPHATE] [Suspect]
     Active Substance: CLINDAMYCIN PHOSPHATE
     Dosage: 300 MILLIGRAM, (BID) TWICE A DAY FOR 10 DAYS
     Route: 048
     Dates: start: 20210105, end: 20210108
  4. DALACINE [CLINDAMYCIN PHOSPHATE] [Suspect]
     Active Substance: CLINDAMYCIN PHOSPHATE
     Indication: PRODUCT USED FOR UNKNOWN INDICATION
     Dosage: UNK
     Route: 065
     Dates: start: 2020
  5. ULTRA?LEVURE [Concomitant]
     Active Substance: SACCHAROMYCES CEREVISIAE
     Dosage: UNK

REACTIONS (6)
  - Dyspnoea [Unknown]
  - Jaw operation [Unknown]
  - Drug intolerance [Unknown]
  - Oesophagitis [Unknown]
  - Fatigue [Unknown]
  - Tongue fungal infection [Unknown]

NARRATIVE: CASE EVENT DATE: 202004
